FAERS Safety Report 22619869 (Version 1)
Quarter: 2023Q2

REPORT INFORMATION
  Report Type: Spontaneous
  Country: IL (occurrence: IL)
  Receive Date: 20230620
  Receipt Date: 20230620
  Transmission Date: 20230721
  Serious: Yes (Death, Hospitalization)
  Sender: FDA-Public Use
  Company Number: IL-AMGEN-ISRSP2023103512

PATIENT

DRUGS (3)
  1. ADALIMUMAB [Suspect]
     Active Substance: ADALIMUMAB
     Indication: Juvenile idiopathic arthritis
     Route: 065
  2. ADALIMUMAB [Suspect]
     Active Substance: ADALIMUMAB
     Indication: Familial mediterranean fever
  3. ADALIMUMAB [Suspect]
     Active Substance: ADALIMUMAB
     Indication: Systemic lupus erythematosus

REACTIONS (2)
  - Multisystem inflammatory syndrome in children [Fatal]
  - COVID-19 [Unknown]
